FAERS Safety Report 5250769-1 (Version None)
Quarter: 2007Q1

REPORT INFORMATION
  Report Type: 
  Country: None (occurrence: None)
  Receive Date: 20070228
  Receipt Date: 20070215
  Transmission Date: 20070707
  Serious: Yes (Other)
  Sender: FDA-Public Use
  Company Number: DE-ELI_LILLY_AND_COMPANY-DE_050916945

PATIENT
  Age: 53 Year
  Sex: Female
  Weight: 79.8 kg

DRUGS (7)
  1. FLUOXETIN ^STADA^ [Concomitant]
     Route: 048
     Dates: start: 20050828, end: 20050912
  2. NERVOREGIN [Concomitant]
     Dosage: UNK, 3/W
  3. ANTIDEPRESSANTS [Concomitant]
  4. FLUCTIN [Suspect]
     Indication: DEPRESSION
     Dosage: 20 MG, 2/D
     Route: 048
     Dates: start: 19990101, end: 20050827
  5. IBUPROFEN [Concomitant]
     Dosage: UNK, UNKNOWN
  6. JODID [Concomitant]
     Dosage: 200 UNK, UNK
  7. VITAMIN A [Concomitant]
     Dosage: UNK, UNKNOWN

REACTIONS (19)
  - ALLERGIC GRANULOMATOUS ANGIITIS [None]
  - ALVEOLITIS [None]
  - ASTHMA [None]
  - BLOOD PRESSURE FLUCTUATION [None]
  - BLOOD PROLACTIN INCREASED [None]
  - BRONCHITIS CHRONIC [None]
  - CARPAL TUNNEL SYNDROME [None]
  - CERVICOBRACHIAL SYNDROME [None]
  - CORONARY ARTERY DISEASE [None]
  - ECZEMA [None]
  - ELECTROCARDIOGRAM ABNORMAL [None]
  - EPICONDYLITIS [None]
  - HYPEREOSINOPHILIC SYNDROME [None]
  - INTERSTITIAL LUNG DISEASE [None]
  - OBESITY [None]
  - OEDEMA MUCOSAL [None]
  - PULMONARY FIBROSIS [None]
  - RESPIRATORY DEPRESSION [None]
  - SLEEP DISORDER [None]
